FAERS Safety Report 19470496 (Version 4)
Quarter: 2021Q3

REPORT INFORMATION
  Report Type: Report from Study
  Country: AU (occurrence: AU)
  Receive Date: 20210629
  Receipt Date: 20210806
  Transmission Date: 20211014
  Serious: Yes (Life-Threatening, Hospitalization, Other)
  Sender: FDA-Public Use
  Company Number: NVSC2021AU104535

PATIENT
  Age: 72 Year
  Sex: Male
  Weight: 58 kg

DRUGS (39)
  1. IBRUTINIB [Suspect]
     Active Substance: IBRUTINIB
     Indication: MANTLE CELL LYMPHOMA
     Dosage: 560 MG, UNKNOWN
     Route: 048
     Dates: start: 20210422
  2. CHOLECALCIFEROL [Concomitant]
     Active Substance: CHOLECALCIFEROL
     Indication: ELECTROLYTE IMBALANCE
     Dosage: 25 UG 1 IN 1 DAY
     Route: 048
     Dates: start: 20210427
  3. MULTI VITAMIN + MINERAL [Concomitant]
     Active Substance: MINERALS\VITAMINS
     Indication: MALNUTRITION
     Dosage: 1 TABLET
     Route: 048
     Dates: start: 20210507
  4. OXALIPLATIN. [Concomitant]
     Active Substance: OXALIPLATIN
     Indication: CHEMOTHERAPY
     Dosage: 170 MG, ONCE/SINGLE
     Route: 042
     Dates: start: 20210428
  5. GEMCITABINE. [Concomitant]
     Active Substance: GEMCITABINE
     Indication: CHEMOTHERAPY
     Dosage: 1672 MG, ONCE/SINGLE
     Route: 042
     Dates: start: 20210428, end: 20210428
  6. VANCOMYCIN [Concomitant]
     Active Substance: VANCOMYCIN
     Indication: ANTIBIOTIC PROPHYLAXIS
     Dosage: 1 G
     Route: 042
     Dates: start: 20210618
  7. TOCILIZUMAB. [Concomitant]
     Active Substance: TOCILIZUMAB
     Indication: CYTOKINE RELEASE SYNDROME
     Dosage: 480 MG, STAT
     Route: 065
     Dates: start: 20210618, end: 20210618
  8. IBRUTINIB [Concomitant]
     Active Substance: IBRUTINIB
     Indication: MANTLE CELL LYMPHOMA
     Dosage: 560 MG, OD
     Route: 048
     Dates: start: 20210330
  9. ONDANSETRON [Concomitant]
     Active Substance: ONDANSETRON
     Indication: NAUSEA
     Dosage: 8 MG, PRN
     Route: 048
     Dates: start: 20210427
  10. SUCCINYLCHOLINE CHLORIDE. [Concomitant]
     Active Substance: SUCCINYLCHOLINE CHLORIDE
     Indication: ANAESTHESIA
     Dosage: 100 MG
     Route: 042
     Dates: start: 20210615
  11. POTASSIUM PHOSPHATE [Concomitant]
     Active Substance: POTASSIUM PHOSPHATE
     Indication: BLOOD POTASSIUM DECREASED
     Dosage: 10 MMOL/ 10 M/S
     Route: 042
     Dates: start: 20210509, end: 20210509
  12. PARACETAMOL [Concomitant]
     Active Substance: ACETAMINOPHEN
     Indication: PAIN
     Dosage: 1000 MG, PRN
     Route: 048
     Dates: start: 20210510
  13. DEXAMETHASONE. [Concomitant]
     Active Substance: DEXAMETHASONE
     Dosage: 4 MG, STAT
     Route: 065
     Dates: start: 20210622, end: 20210622
  14. GENTAMICIN. [Concomitant]
     Active Substance: GENTAMICIN
     Indication: ANTIBIOTIC PROPHYLAXIS
     Dosage: 240 MG
     Route: 065
     Dates: start: 20210618, end: 20210618
  15. MULTI VITAMIN + MINERAL [Concomitant]
     Active Substance: MINERALS\VITAMINS
     Indication: DEPILATION
  16. PANTOPRAZOLE [Concomitant]
     Active Substance: PANTOPRAZOLE
     Indication: DYSPEPSIA
     Dosage: 40 MG, OD
     Route: 048
     Dates: start: 20210425
  17. PANTOPRAZOLE [Concomitant]
     Active Substance: PANTOPRAZOLE
     Dosage: 40 MG, OD
     Route: 048
     Dates: start: 20210426
  18. FENTANYL. [Concomitant]
     Active Substance: FENTANYL
     Indication: SEDATION
     Dosage: 100 MCG, INJ
     Route: 042
     Dates: start: 20210618
  19. MAGNESIUM SULFATE. [Concomitant]
     Active Substance: MAGNESIUM SULFATE
     Indication: BLOOD MAGNESIUM DECREASED
     Dosage: 20 MMOL/ 10M/S
     Route: 042
     Dates: start: 20210512, end: 20210512
  20. VALACICLOVIR [Concomitant]
     Active Substance: VALACYCLOVIR HYDROCHLORIDE
     Indication: ANTIVIRAL PROPHYLAXIS
     Dosage: 500 MG, DAILY
     Route: 048
     Dates: start: 202101
  21. FLUCONAZOLE. [Concomitant]
     Active Substance: FLUCONAZOLE
     Indication: ANTIFUNGAL PROPHYLAXIS
     Dosage: 200 MG, DAILY
     Route: 048
     Dates: start: 20210611
  22. PARACETAMOL [Concomitant]
     Active Substance: ACETAMINOPHEN
     Dosage: 1G/100 ML
     Route: 065
     Dates: start: 20210618, end: 20210622
  23. TISAGENLECLEUCEL. [Suspect]
     Active Substance: TISAGENLECLEUCEL
     Indication: MANTLE CELL LYMPHOMA
     Dosage: 0.6?6.0 X 108 CAR?POSITIVE VIABLE T CELL
     Route: 042
     Dates: start: 20210615, end: 20210615
  24. CYCLOPHOSPHAMIDE. [Concomitant]
     Active Substance: CYCLOPHOSPHAMIDE
     Indication: MANTLE CELL LYMPHOMA
     Dosage: 418 MG, UNKNOWN
     Route: 042
     Dates: start: 20210610
  25. ALLOPURINOL. [Concomitant]
     Active Substance: ALLOPURINOL
     Indication: MANTLE CELL LYMPHOMA
     Dosage: 300 MG, QD
     Route: 048
     Dates: start: 202101
  26. RESPIRIN [Concomitant]
     Indication: MANTLE CELL LYMPHOMA
     Dosage: UNK UNK, 3X WEEK
     Route: 048
     Dates: start: 202101
  27. POTASSIUM CHLORIDE. [Concomitant]
     Active Substance: POTASSIUM CHLORIDE
     Indication: BLOOD POTASSIUM DECREASED
     Dosage: 600 MG, BD
     Route: 048
     Dates: start: 20210424
  28. LEVETIRACETAM. [Concomitant]
     Active Substance: LEVETIRACETAM
     Indication: SEIZURE PROPHYLAXIS
     Dosage: 250 MG, DAILY
     Route: 048
     Dates: start: 20210615
  29. THIAMINE. [Concomitant]
     Active Substance: THIAMINE
     Indication: ELECTROLYTE IMBALANCE
     Dosage: 100 MG, DAILY
     Route: 048
     Dates: start: 20210507
  30. DEXAMETHASONE. [Concomitant]
     Active Substance: DEXAMETHASONE
     Dosage: 4 MG, STAT
     Route: 065
     Dates: start: 20210621, end: 20210621
  31. FLUDARABINE [Concomitant]
     Active Substance: FLUDARABINE PHOSPHATE
     Indication: MANTLE CELL LYMPHOMA
     Dosage: 42 MG, UNKNOWN
     Route: 042
     Dates: start: 20210610
  32. VALTREX [Concomitant]
     Active Substance: VALACYCLOVIR HYDROCHLORIDE
     Indication: MANTLE CELL LYMPHOMA
     Dosage: 500 MG, OD
     Route: 048
     Dates: start: 202101
  33. POTASSIUM CHLORIDE. [Concomitant]
     Active Substance: POTASSIUM CHLORIDE
     Dosage: 10 MMOL/ 100M/S
     Route: 042
     Dates: start: 20210510, end: 20210510
  34. NYSTATIN. [Concomitant]
     Active Substance: NYSTATIN
     Indication: ORAL CANDIDIASIS
     Dosage: UNK UNK, TDI
     Route: 048
     Dates: start: 202101
  35. POTASSIUM CHLORIDE. [Concomitant]
     Active Substance: POTASSIUM CHLORIDE
     Dosage: 10 MMOL/ 100M/S
     Route: 042
     Dates: start: 20210509, end: 20210509
  36. METOCLOPRAMIDE. [Concomitant]
     Active Substance: METOCLOPRAMIDE
     Indication: NAUSEA
     Dosage: 10 MG, PRN
     Route: 048
     Dates: start: 20210427
  37. TOCILIZUMAB. [Concomitant]
     Active Substance: TOCILIZUMAB
     Dosage: 480 MG, STAT
     Route: 065
     Dates: start: 20210621, end: 20210621
  38. DEXAMETHASONE. [Concomitant]
     Active Substance: DEXAMETHASONE
     Indication: CYTOKINE RELEASE SYNDROME
     Dosage: 4 MG, STAT
     Route: 065
     Dates: start: 20210618, end: 20210618
  39. ALLOPURINOL. [Concomitant]
     Active Substance: ALLOPURINOL
     Indication: BLOOD URIC ACID DECREASED

REACTIONS (3)
  - Tumour flare [Recovered/Resolved]
  - Pyrexia [Recovered/Resolved]
  - Stomatitis [Recovered/Resolved]

NARRATIVE: CASE EVENT DATE: 20210507
